FAERS Safety Report 20239037 (Version 1)
Quarter: 2021Q4

REPORT INFORMATION
  Report Type: Spontaneous
  Country: FI (occurrence: FI)
  Receive Date: 20211228
  Receipt Date: 20211228
  Transmission Date: 20220303
  Serious: Yes (Death)
  Sender: FDA-Public Use
  Company Number: FI-TEVA-2021-FI-1993782

PATIENT
  Age: 63 Year
  Sex: Male

DRUGS (3)
  1. BISOPROLOL [Interacting]
     Active Substance: BISOPROLOL
     Route: 065
  2. DILTIAZEM [Interacting]
     Active Substance: DILTIAZEM
     Route: 065
  3. CHLORPROTHIXENE [Concomitant]
     Active Substance: CHLORPROTHIXENE

REACTIONS (1)
  - Drug interaction [Fatal]
